FAERS Safety Report 19048117 (Version 1)
Quarter: 2021Q1

REPORT INFORMATION
  Report Type: Spontaneous
  Country: GR (occurrence: GR)
  Receive Date: 20210324
  Receipt Date: 20210324
  Transmission Date: 20210420
  Serious: Yes (Hospitalization, Other)
  Sender: FDA-Public Use
  Company Number: GR-LUPIN PHARMACEUTICALS INC.-2021-03682

PATIENT
  Age: 14 Year
  Sex: Male

DRUGS (1)
  1. METOCLOPRAMIDE HYDROCHLOROIDE [Suspect]
     Active Substance: METOCLOPRAMIDE HYDROCHLORIDE
     Indication: DRUG THERAPY
     Dosage: 10 MG/PUFF (HE RECEIVED APPROXIMATELY 25 PUFFS EVERY NOSTRIL)
     Route: 045

REACTIONS (3)
  - Wrong product administered [Unknown]
  - Accidental overdose [Unknown]
  - Dystonia [Recovered/Resolved]
